FAERS Safety Report 25913858 (Version 1)
Quarter: 2025Q4

REPORT INFORMATION
  Report Type: Spontaneous
  Country: US (occurrence: US)
  Receive Date: 20251013
  Receipt Date: 20251013
  Transmission Date: 20260119
  Serious: No
  Sender: DAIICHI
  Company Number: US-DSJP-DS-2025-169195-US

PATIENT
  Age: 63 Year
  Sex: Male

DRUGS (2)
  1. ENHERTU [Suspect]
     Active Substance: FAM-TRASTUZUMAB DERUXTECAN-NXKI
     Indication: Pancreatic carcinoma
     Dosage: 369.9 MG, ONCE EVERY 3 WK
     Route: 042
  2. ENHERTU [Suspect]
     Active Substance: FAM-TRASTUZUMAB DERUXTECAN-NXKI
     Dosage: 349 MG, ONCE EVERY 3 WK
     Route: 042
     Dates: start: 20251008

REACTIONS (2)
  - Weight fluctuation [Unknown]
  - Off label use [Not Recovered/Not Resolved]
